FAERS Safety Report 16776024 (Version 4)
Quarter: 2019Q4

REPORT INFORMATION
  Report Type: Spontaneous
  Country: BR (occurrence: BR)
  Receive Date: 20190905
  Receipt Date: 20191028
  Transmission Date: 20200122
  Serious: Yes (Other)
  Sender: FDA-Public Use
  Company Number: PHHY2019BR204358

PATIENT
  Age: 25 Year
  Sex: Female
  Weight: 45 kg

DRUGS (4)
  1. AMOXICILLIN TRIHYDRATE,POTASSIUM CLAVULANATE [Suspect]
     Active Substance: AMOXICILLIN\CLAVULANATE POTASSIUM
     Indication: OROPHARYNGEAL PAIN
  2. AMOXICILLIN TRIHYDRATE,POTASSIUM CLAVULANATE [Suspect]
     Active Substance: AMOXICILLIN\CLAVULANATE POTASSIUM
     Indication: INFLAMMATION
     Dosage: UNK UNK, TID
     Route: 048
     Dates: start: 20190721
  3. CICLO [Concomitant]
     Indication: CONTRACEPTION
     Dosage: 1 DF, QD
     Route: 048
  4. STREPSILS [Concomitant]
     Indication: OROPHARYNGEAL PAIN
     Dosage: UNK UNK, TID
     Route: 048
     Dates: start: 20190721, end: 20190722

REACTIONS (6)
  - Irritable bowel syndrome [Recovering/Resolving]
  - Diarrhoea haemorrhagic [Recovering/Resolving]
  - Urticaria [Recovered/Resolved]
  - Drug ineffective [Recovering/Resolving]
  - Haemorrhoids [Recovered/Resolved]
  - Abdominal pain [Recovering/Resolving]

NARRATIVE: CASE EVENT DATE: 201907
